FAERS Safety Report 5121010-5 (Version None)
Quarter: 2006Q4

REPORT INFORMATION
  Report Type: 
  Country: None (occurrence: None)
  Receive Date: 20061005
  Receipt Date: 20060926
  Transmission Date: 20070319
  Serious: Yes (Hospitalization, Other)
  Sender: FDA-Public Use
  Company Number: GB-JNJFOC-20060905847

PATIENT
  Sex: Female
  Weight: 43.5 kg

DRUGS (7)
  1. REMICADE [Suspect]
     Indication: RHEUMATOID ARTHRITIS
     Route: 042
  2. METHOTREXATE [Concomitant]
     Route: 065
  3. PREDNISOLONE [Concomitant]
     Route: 065
  4. FOLIC ACID [Concomitant]
     Route: 065
  5. RANITIDINE [Concomitant]
     Route: 065
  6. RELIFLEX [Concomitant]
     Route: 065
  7. TRAMADOL [Concomitant]
     Route: 065

REACTIONS (1)
  - PERICARDITIS [None]
